FAERS Safety Report 15056481 (Version 4)
Quarter: 2019Q4

REPORT INFORMATION
  Report Type: Spontaneous
  Country: GB (occurrence: GB)
  Receive Date: 20180623
  Receipt Date: 20191024
  Transmission Date: 20200122
  Serious: Yes (Hospitalization, Other)
  Sender: FDA-Public Use
  Company Number: GB-ACCORD-068563

PATIENT
  Age: 11 Year
  Sex: Male
  Weight: 48 kg

DRUGS (4)
  1. DEFLAZACORT [Concomitant]
     Active Substance: DEFLAZACORT
     Indication: DUCHENNE MUSCULAR DYSTROPHY
  2. ZOLEDRONIC ACID [Suspect]
     Active Substance: ZOLEDRONIC ACID
     Indication: SPINAL FRACTURE
     Dosage: RECEIVED A HALF DOSE OF ZOLEDRONATE (0.025 MG/KG) ?INFUSION
     Route: 042
     Dates: start: 20171201, end: 20171201
  3. CALCIUM [Concomitant]
     Active Substance: CALCIUM
     Indication: PROPHYLAXIS
     Dosage: CALCIUM SUPPLEMENTATION AS PER HOSPITAL PROTOCOL
  4. COLECALCIFEROL [Concomitant]
     Active Substance: CHOLECALCIFEROL
     Indication: PROPHYLAXIS
     Dosage: VITAMIN D SUPPLEMENTATION

REACTIONS (12)
  - Hypophosphataemia [Recovered/Resolved]
  - Myoglobinuria [Recovered/Resolved]
  - Hypocalcaemia [Recovered/Resolved]
  - Blood urine present [Unknown]
  - Malaise [Unknown]
  - Rhabdomyolysis [Recovered/Resolved]
  - Systemic inflammatory response syndrome [Recovered/Resolved]
  - Muscle spasms [Unknown]
  - Tachypnoea [Unknown]
  - Chromaturia [Unknown]
  - Tachycardia [Unknown]
  - Inflammation [Recovered/Resolved]

NARRATIVE: CASE EVENT DATE: 20171202
